FAERS Safety Report 10862805 (Version 1)
Quarter: 2015Q1

REPORT INFORMATION
  Report Type: Other
  Country: FI (occurrence: FI)
  Receive Date: 20150223
  Receipt Date: 20150223
  Transmission Date: 20150721
  Serious: Yes (Hospitalization)
  Sender: FDA-Public Use
  Company Number: FI-ASTELLAS-2015US004827

PATIENT
  Age: 76 Year
  Sex: Female

DRUGS (14)
  1. MAREVAN [Concomitant]
     Active Substance: WARFARIN SODIUM
     Indication: THROMBOSIS
     Dosage: UNK UNK, ACCORDING TO SEPARATE INSTRUCTION
     Route: 048
     Dates: start: 20150115
  2. METOHEXAL                          /00376902/ [Concomitant]
     Active Substance: METOPROLOL SUCCINATE
     Indication: ATRIAL FIBRILLATION
     Dosage: 95 MG, IN THE MORNING
     Route: 048
     Dates: start: 20150112
  3. PANADOL                            /00020001/ [Concomitant]
     Indication: PAIN
     Dosage: 665-1330 MG, THRICE DAILY
     Route: 048
     Dates: start: 20141118
  4. DIFORMIN [Concomitant]
     Active Substance: METFORMIN HYDROCHLORIDE
     Indication: DIABETES MELLITUS
     Dosage: 1 DF, WHEN MEAL
     Route: 048
     Dates: start: 20150120
  5. AMLODIPIN ORION                    /00972402/ [Concomitant]
     Indication: BLOOD PRESSURE
     Dosage: 5 MG, 5 (-10)
     Route: 048
  6. VAGIFEM [Concomitant]
     Active Substance: ESTRADIOL
     Indication: MUCOUS MEMBRANE DISORDER
     Route: 067
  7. PERSANTIN [Concomitant]
     Active Substance: DIPYRIDAMOLE
     Indication: CEREBRAL DISORDER
     Dosage: 200 MG X 2
     Route: 048
  8. VESICARE [Suspect]
     Active Substance: SOLIFENACIN SUCCINATE
     Indication: PRODUCT USED FOR UNKNOWN INDICATION
     Dosage: UNKNOWN FREQ.
     Route: 048
     Dates: end: 201411
  9. BETMIGA [Suspect]
     Active Substance: MIRABEGRON
     Indication: MICTURITION URGENCY
  10. ARCOXIA [Concomitant]
     Active Substance: ETORICOXIB
     Indication: PAIN
     Dosage: 30 - 60 MG X1
     Route: 048
     Dates: start: 20141118
  11. LINATIL COMP [Concomitant]
     Active Substance: ENALAPRIL MALEATE\HYDROCHLOROTHIAZIDE
     Indication: BLOOD PRESSURE
     Dosage: 20/12.5 MG, UNKNOWN FREQ.
     Route: 048
  12. BETMIGA [Suspect]
     Active Substance: MIRABEGRON
     Indication: HYPERTONIC BLADDER
     Route: 048
     Dates: start: 20141128, end: 20150209
  13. METOHEXAL                          /00376902/ [Concomitant]
     Active Substance: METOPROLOL SUCCINATE
     Indication: ATRIAL FLUTTER
  14. ROSUVASTATIN SANDOZ [Concomitant]
     Indication: BLOOD CHOLESTEROL
     Route: 048
     Dates: start: 20150120

REACTIONS (3)
  - Atrial fibrillation [Not Recovered/Not Resolved]
  - Drug ineffective [Unknown]
  - Drug ineffective [Unknown]

NARRATIVE: CASE EVENT DATE: 201411
